FAERS Safety Report 5933839-1 (Version None)
Quarter: 2008Q4

REPORT INFORMATION
  Report Type: 
  Country: None (occurrence: None)
  Receive Date: 20081024
  Receipt Date: 20081013
  Transmission Date: 20090506
  Serious: Yes (Other)
  Sender: FDA-Public Use
  Company Number: 237860J08USA

PATIENT
  Age: 48 Year
  Sex: Male
  Weight: 93 kg

DRUGS (4)
  1. REBIF [Suspect]
     Indication: MULTIPLE SCLEROSIS
     Dosage: 44 MCG, 3 IN1 WEEKS, SUBCUTANEOUS
     Route: 058
     Dates: start: 20070118
  2. ASPIRIN [Concomitant]
  3. ZANAFLEX [Concomitant]
  4. LEXAPRO [Concomitant]

REACTIONS (5)
  - BURSITIS [None]
  - CARTILAGE INJURY [None]
  - EXOSTOSIS [None]
  - INCISION SITE INFECTION [None]
  - ROTATOR CUFF SYNDROME [None]
